FAERS Safety Report 20029551 (Version 1)
Quarter: 2021Q4

REPORT INFORMATION
  Report Type: Report from Study
  Country: KR (occurrence: KR)
  Receive Date: 20211103
  Receipt Date: 20211103
  Transmission Date: 20220303
  Serious: Yes (Hospitalization)
  Sender: FDA-Public Use
  Company Number: KR-CELGENE-KOR-20211005727

PATIENT
  Age: 74 Year
  Sex: Male
  Weight: 70.3 kg

DRUGS (28)
  1. LENALIDOMIDE [Suspect]
     Active Substance: LENALIDOMIDE
     Indication: Plasma cell myeloma
     Dosage: 25 MILLIGRAM
     Route: 048
     Dates: start: 20210210, end: 20211015
  2. LENALIDOMIDE [Suspect]
     Active Substance: LENALIDOMIDE
     Dosage: 25 MILLIGRAM
     Route: 048
     Dates: start: 20211025
  3. DEXAMETHASONE [Suspect]
     Active Substance: DEXAMETHASONE
     Indication: Plasma cell myeloma
     Dosage: 20 MILLIGRAM
     Route: 065
     Dates: start: 20210210, end: 20211015
  4. DEXAMETHASONE [Suspect]
     Active Substance: DEXAMETHASONE
     Dosage: 20 MILLIGRAM
     Route: 065
     Dates: start: 20211025
  5. ASPIRIN [Concomitant]
     Active Substance: ASPIRIN
     Indication: Prophylaxis
     Dosage: 100 MILLIGRAM
     Route: 065
     Dates: start: 20210210
  6. TOUJEO [Concomitant]
     Active Substance: INSULIN GLARGINE
     Indication: Diabetes mellitus
     Dosage: 1 UNIT
     Route: 065
     Dates: start: 20210312
  7. DIABEX [Concomitant]
     Active Substance: METFORMIN HYDROCHLORIDE
     Indication: Diabetes mellitus
     Route: 048
     Dates: start: 2000
  8. APIDRA [Concomitant]
     Active Substance: INSULIN GLULISINE
     Indication: Diabetes mellitus
     Dosage: 1 UNIT
     Route: 058
     Dates: start: 20210312
  9. Zemimet SR [Concomitant]
     Indication: Diabetes mellitus
     Route: 048
     Dates: start: 20210816
  10. NEXIUM [Concomitant]
     Active Substance: ESOMEPRAZOLE MAGNESIUM
     Indication: Prophylaxis against gastrointestinal ulcer
     Dosage: 20 MILLIGRAM
     Route: 048
     Dates: start: 20210414
  11. LEXAPRO [Concomitant]
     Active Substance: ESCITALOPRAM OXALATE
     Indication: Depression
     Dosage: 5 MILLIGRAM
     Route: 048
     Dates: start: 20210409
  12. LACTULOSE [Concomitant]
     Active Substance: LACTULOSE
     Indication: Constipation
     Dosage: 15 MILLILITER
     Route: 048
     Dates: start: 20210409, end: 20210423
  13. LACTULOSE [Concomitant]
     Active Substance: LACTULOSE
     Dosage: 15 MILLILITER
     Route: 048
     Dates: start: 20210712
  14. Mago [Concomitant]
     Indication: Constipation
     Dosage: 500 MILLIGRAM
     Route: 048
     Dates: start: 20210712
  15. PANTOPRAZOLE SODIUM [Concomitant]
     Active Substance: PANTOPRAZOLE SODIUM
     Indication: Gastric ulcer
     Dosage: 40 MILLIGRAM
     Route: 048
     Dates: start: 20210224
  16. HARNAL [Concomitant]
     Active Substance: TAMSULOSIN HYDROCHLORIDE
     Indication: Benign prostatic hyperplasia
     Route: 048
     Dates: start: 2020
  17. VESICARE [Concomitant]
     Active Substance: SOLIFENACIN SUCCINATE
     Indication: Benign prostatic hyperplasia
     Dosage: 10 MILLIGRAM
     Route: 048
     Dates: start: 20210428
  18. Dicamax D [Concomitant]
     Indication: Osteoporosis prophylaxis
     Route: 048
     Dates: start: 20210330
  19. DIAMEDY [Concomitant]
     Indication: Diabetes mellitus
     Dosage: 2 MILLIGRAM
     Route: 065
     Dates: start: 2000, end: 20210312
  20. AMARYL [Concomitant]
     Active Substance: GLIMEPIRIDE
     Indication: Diabetes mellitus
     Dosage: 4 MILLIGRAM
     Route: 065
     Dates: start: 20000120, end: 20210312
  21. HUMULIN R [Concomitant]
     Active Substance: INSULIN HUMAN
     Indication: Diabetes mellitus
     Dosage: 1 UNIT
     Route: 058
     Dates: start: 20210223, end: 20210310
  22. MULEX [Concomitant]
     Indication: Pain in extremity
     Route: 048
     Dates: start: 20210325, end: 20210718
  23. TRAMADOL HYDROCHLORIDE [Concomitant]
     Active Substance: TRAMADOL HYDROCHLORIDE
     Indication: Prophylaxis
     Dosage: 50 MILLIGRAM
     Route: 041
     Dates: start: 20210309, end: 20210328
  24. MEGACE F [Concomitant]
     Indication: Prophylaxis
     Dosage: 5 MILLILITER
     Route: 048
     Dates: start: 20210309, end: 20210606
  25. ULTRACET [Concomitant]
     Active Substance: ACETAMINOPHEN\TRAMADOL HYDROCHLORIDE
     Indication: Pain in extremity
     Route: 048
     Dates: start: 20210205, end: 20210409
  26. NALOXONE HYDROCHLORIDE\OXYCODONE HYDROCHLORIDE [Concomitant]
     Active Substance: NALOXONE HYDROCHLORIDE\OXYCODONE HYDROCHLORIDE
     Indication: Pain in extremity
     Route: 048
     Dates: start: 20210410, end: 20210815
  27. OXYCODONE HYDROCHLORIDE [Concomitant]
     Active Substance: OXYCODONE HYDROCHLORIDE
     Indication: Pain in extremity
     Route: 048
     Dates: start: 20210410, end: 20210815
  28. PMS-NYSTATIN [Concomitant]
     Indication: Prophylaxis
     Route: 048
     Dates: start: 20210303, end: 20210308

REACTIONS (1)
  - Colitis [Recovered/Resolved]

NARRATIVE: CASE EVENT DATE: 20211013
